FAERS Safety Report 17622554 (Version 1)
Quarter: 2020Q2

REPORT INFORMATION
  Report Type: Spontaneous
  Country: US (occurrence: US)
  Receive Date: 20200403
  Receipt Date: 20200403
  Transmission Date: 20200713
  Serious: No
  Sender: FDA-Public Use
  Company Number: None

PATIENT
  Age: 66 Year
  Sex: Female
  Weight: 76.5 kg

DRUGS (5)
  1. NAPROXEN. [Concomitant]
     Active Substance: NAPROXEN
  2. METFORMIN HCL ER 500MG TABLETS [Suspect]
     Active Substance: METFORMIN HYDROCHLORIDE
     Indication: TYPE 2 DIABETES MELLITUS
     Dosage: ?          QUANTITY:1 TABLET(S);?
     Route: 048
     Dates: start: 20191217, end: 20200311
  3. PRAVASTATIN. [Concomitant]
     Active Substance: PRAVASTATIN
  4. VIT. D [Concomitant]
  5. ALOGLIPTIN. [Concomitant]
     Active Substance: ALOGLIPTIN

REACTIONS (3)
  - Product substitution issue [None]
  - Product measured potency issue [None]
  - Blood glucose increased [None]

NARRATIVE: CASE EVENT DATE: 20200129
